FAERS Safety Report 8850351 (Version 3)
Quarter: 2016Q4

REPORT INFORMATION
  Report Type: Report from Study
  Country: DE (occurrence: DE)
  Receive Date: 20121019
  Receipt Date: 20161229
  Transmission Date: 20170207
  Serious: Yes (Hospitalization)
  Sender: FDA-Public Use
  Company Number: DE-BAXTER-2012BAX019561

PATIENT
  Age: 66 Year
  Sex: Male
  Weight: 73 kg

DRUGS (27)
  1. PARACETAMOL [Concomitant]
     Active Substance: ACETAMINOPHEN
     Indication: PROPHYLAXIS
     Route: 065
     Dates: start: 20111124, end: 20130415
  2. BIOGRASTIM [Concomitant]
     Indication: LEUKOPENIA
     Route: 065
     Dates: start: 20120308, end: 20120310
  3. DOXORUBICIN [Suspect]
     Active Substance: DOXORUBICIN
     Indication: NON-HODGKIN^S LYMPHOMA
     Dosage: LAST DOSE ON 08MAR2012 PRIOR TO ADVERSE EVENT
     Route: 042
     Dates: start: 20111124, end: 20120308
  4. BIOGRASTIM [Concomitant]
     Indication: NEUTROPENIA
     Route: 065
     Dates: start: 20111208
  5. METOCLOPRAMIDE. [Concomitant]
     Active Substance: METOCLOPRAMIDE
     Indication: VOMITING
     Route: 065
     Dates: start: 20111215
  6. ENDOXAN 1G [Suspect]
     Active Substance: CYCLOPHOSPHAMIDE
     Indication: NON-HODGKIN^S LYMPHOMA
     Dosage: LAST DOSE PRIOR TO EVENT ON 08MAR2012
     Route: 042
     Dates: start: 20111124, end: 20120308
  7. RITUXIMAB [Suspect]
     Active Substance: RITUXIMAB
     Indication: NON-HODGKIN^S LYMPHOMA
     Route: 042
     Dates: start: 20111124
  8. NOVALGIN [Concomitant]
     Active Substance: METAMIZOLE SODIUM
     Indication: INFECTION PROPHYLAXIS
     Route: 065
     Dates: start: 20120313
  9. BIFITERAL [Concomitant]
     Active Substance: LACTULOSE
     Indication: CONSTIPATION
     Route: 065
     Dates: start: 20120319
  10. FENISTIL [Concomitant]
     Active Substance: DIMETHINDENE
     Indication: HERPES ZOSTER
     Route: 065
     Dates: start: 20130215
  11. RITUXIMAB [Suspect]
     Active Substance: RITUXIMAB
     Dosage: VOLUME TAKEN 710ML, MOST RECENT DOSE PRIOR TO ADVERSE EVENT
     Route: 042
     Dates: start: 20120329
  12. PREDNISONE. [Suspect]
     Active Substance: PREDNISONE
     Dosage: LAST DOSE PRIOR TO ADVERSE EVENT
     Route: 048
     Dates: start: 20120312, end: 20120312
  13. EMEND [Concomitant]
     Active Substance: APREPITANT
     Indication: PROPHYLAXIS OF NAUSEA AND VOMITING
     Route: 065
     Dates: start: 20111124, end: 20120310
  14. LAUROMACROGOL 400 [Concomitant]
     Active Substance: POLIDOCANOL
     Indication: PRODUCT USED FOR UNKNOWN INDICATION
     Route: 065
  15. VINCRISTINE [Suspect]
     Active Substance: VINCRISTINE
     Indication: NON-HODGKIN^S LYMPHOMA
     Dosage: LAST DOSE ON 08MAR2012 PRIOR TO ADVERSE EVENT
     Route: 040
     Dates: start: 20111124, end: 20120308
  16. ANAESTHESULF [Concomitant]
     Indication: HERPES ZOSTER
     Route: 065
     Dates: start: 20130215
  17. RITUXIMAB [Suspect]
     Active Substance: RITUXIMAB
     Dosage: MOST RECENT DOSE PRIOR TO EVENT
     Route: 042
     Dates: start: 20120308
  18. CIPROBAY [Concomitant]
     Active Substance: CIPROFLOXACIN
     Indication: PYREXIA
     Route: 065
     Dates: start: 20120511, end: 20120518
  19. UROMITEXAN 400 MG [Suspect]
     Active Substance: MESNA
     Indication: PRODUCT USED FOR UNKNOWN INDICATION
     Route: 065
     Dates: start: 20111124, end: 20120308
  20. PREDNISONE. [Suspect]
     Active Substance: PREDNISONE
     Indication: NON-HODGKIN^S LYMPHOMA
     Route: 048
     Dates: start: 20111124
  21. RANITIDINE. [Concomitant]
     Active Substance: RANITIDINE
     Indication: PROPHYLAXIS
     Route: 065
     Dates: start: 20111124
  22. BIOGRASTIM [Concomitant]
     Indication: PYREXIA
     Route: 065
     Dates: start: 20120519, end: 20120523
  23. GRANISETRON HYDROCHLORIDE. [Concomitant]
     Active Substance: GRANISETRON HYDROCHLORIDE
     Indication: PROPHYLAXIS OF NAUSEA AND VOMITING
     Route: 065
     Dates: start: 20111124, end: 20120308
  24. SULFAMETHOXAZOLE/TRIMETHOPRIM [Suspect]
     Active Substance: SULFAMETHOXAZOLE\TRIMETHOPRIM
     Indication: PRODUCT USED FOR UNKNOWN INDICATION
     Route: 065
  25. PANTOPRAZOLE [Concomitant]
     Active Substance: PANTOPRAZOLE SODIUM
     Indication: PROPHYLAXIS
     Route: 065
     Dates: start: 20111215
  26. CIPROBAY [Concomitant]
     Active Substance: CIPROFLOXACIN
     Indication: INFECTION
     Route: 065
     Dates: start: 20120209, end: 20120216
  27. ACICLOVIR [Concomitant]
     Active Substance: ACYCLOVIR
     Indication: HERPES ZOSTER
     Route: 065
     Dates: start: 20130222

REACTIONS (2)
  - Spinal fracture [Not Recovered/Not Resolved]
  - Compression fracture [Recovered/Resolved]

NARRATIVE: CASE EVENT DATE: 20120316
